FAERS Safety Report 18928871 (Version 1)
Quarter: 2021Q1

REPORT INFORMATION
  Report Type: Report from Study
  Country: GB (occurrence: GB)
  Receive Date: 20210223
  Receipt Date: 20210223
  Transmission Date: 20210420
  Serious: Yes (Other)
  Sender: FDA-Public Use
  Company Number: GB-BAXTER-2021BAX003440

PATIENT
  Age: 53 Year
  Sex: Female

DRUGS (5)
  1. SODIUM CHLORIDE 0.9% INTRAVENOUS INFUSION BP [Suspect]
     Active Substance: SODIUM CHLORIDE
     Indication: MEDICATION DILUTION
     Dosage: 0.9% NORMAL SALINE WITH 20 MMOLS POTASSIUM AND 10 MMOLS MAGNESIUM?INFUSION DURATION: 720 MLS
     Route: 042
     Dates: start: 20210211, end: 20210212
  2. SODIUM CHLORIDE 0.9% INTRAVENOUS INFUSION BP [Suspect]
     Active Substance: SODIUM CHLORIDE
     Dosage: 0.9% SODIUM CHLORIDE WITH 40 MMOLS POTASSIUM?INFUSION DURATION: 720 MLS
     Route: 042
     Dates: start: 20210211, end: 20210212
  3. POTASSIUM [Suspect]
     Active Substance: POTASSIUM
     Indication: PRODUCT USED FOR UNKNOWN INDICATION
     Dosage: 0.9% NORMAL SALINE WITH 20 MMOLS POTASSIUM AND 10 MMOLS MAGNESIUM?INFUSION DURATION: 720 MLS
     Route: 042
     Dates: start: 20210211, end: 20210212
  4. MAGNESIUM [Suspect]
     Active Substance: MAGNESIUM
     Indication: PRODUCT USED FOR UNKNOWN INDICATION
     Dosage: 0.9% NORMAL SALINE WITH 20 MMOLS POTASSIUM AND 10 MMOLS MAGNESIUM?INFUSION DURATION: 720 MLS
     Route: 042
     Dates: start: 20210211, end: 20210212
  5. POTASSIUM [Suspect]
     Active Substance: POTASSIUM
     Dosage: 0.9% SODIUM CHLORIDE WITH 40 MMOLS POTASSIUM?INFUSION DURATION: 720 MLS
     Route: 042
     Dates: start: 20210211, end: 20210212

REACTIONS (1)
  - Chest pain [Recovering/Resolving]

NARRATIVE: CASE EVENT DATE: 20210211
